FAERS Safety Report 7217364-6 (Version None)
Quarter: 2010Q4

REPORT INFORMATION
  Report Type: 
  Country: None (occurrence: None)
  Receive Date: 20101126
  Receipt Date: 20100819
  Transmission Date: 20110411
  Serious: No
  Sender: FDA-Public Use
  Company Number: 314106

PATIENT
  Age: 63 Year
  Sex: Female

DRUGS (5)
  1. VICTOZA [Suspect]
     Indication: TYPE 2 DIABETES MELLITUS
     Dosage: (1.2 MG, QD, SUBCUTANEOUS) (0.6 MG, QD, SUBCUTANEOUS)
     Route: 058
     Dates: start: 20100601
  2. VICTOZA [Suspect]
     Indication: TYPE 2 DIABETES MELLITUS
     Dosage: (1.2 MG, QD, SUBCUTANEOUS) (0.6 MG, QD, SUBCUTANEOUS)
     Route: 058
     Dates: start: 20100801
  3. COUMADIN [Concomitant]
  4. ISOSORBIDE (ISOSORBIDE) [Concomitant]
  5. RANEXA [Concomitant]

REACTIONS (3)
  - DIARRHOEA [None]
  - HEADACHE [None]
  - HYPOGLYCAEMIA [None]
